FAERS Safety Report 8812948 (Version 1)
Quarter: 2012Q4

REPORT INFORMATION
  Report Type: 
  Country: US (occurrence: US)
  Receive Date: 20120927
  Receipt Date: 20120927
  Transmission Date: 20130627
  Serious: No
  Sender: FDA-Public Use
  Company Number: US-AMGEN-USASP2012035501

PATIENT
  Age: 66 Year
  Sex: Female

DRUGS (1)
  1. PROLIA [Suspect]
     Indication: OSTEOPOROSIS POSTMENOPAUSAL
     Dosage: UNK
     Dates: start: 201205

REACTIONS (10)
  - Candidiasis [Unknown]
  - Pain [Unknown]
  - Joint crepitation [Unknown]
  - Cough [Unknown]
  - Sleep disorder [Unknown]
  - Feeling cold [Unknown]
  - Hyperhidrosis [Unknown]
  - Anger [Unknown]
  - Osteoarthritis [Unknown]
  - Ear infection [Unknown]
